FAERS Safety Report 12067099 (Version 4)
Quarter: 2016Q1

REPORT INFORMATION
  Report Type: Spontaneous
  Country: US (occurrence: US)
  Receive Date: 20160210
  Receipt Date: 20160317
  Transmission Date: 20160526
  Serious: Yes (Death, Hospitalization, Other)
  Sender: FDA-Public Use
  Company Number: US-JNJFOC-20151211084

PATIENT
  Age: 72 Year
  Sex: Female
  Weight: 57.15 kg

DRUGS (3)
  1. DARZALEX [Suspect]
     Active Substance: DARATUMUMAB
     Indication: PLASMA CELL MYELOMA
     Route: 042
     Dates: start: 20151203, end: 20151206
  2. ACYCLOVIR. [Concomitant]
     Active Substance: ACYCLOVIR
  3. BLOOD AND RELATED PRODUCTS [Concomitant]
     Active Substance: HUMAN BLOOD CELLS
     Indication: ANAEMIA

REACTIONS (7)
  - Pancytopenia [Fatal]
  - Myocardial infarction [Unknown]
  - Fatigue [Unknown]
  - Acute respiratory failure [Fatal]
  - Cardiac failure congestive [Fatal]
  - Plasma cell myeloma [Fatal]
  - Sepsis [Fatal]

NARRATIVE: CASE EVENT DATE: 201512
